FAERS Safety Report 17173011 (Version 1)
Quarter: 2019Q4

REPORT INFORMATION
  Report Type: Spontaneous
  Country: US (occurrence: US)
  Receive Date: 20191218
  Receipt Date: 20191218
  Transmission Date: 20200122
  Serious: No
  Sender: FDA-Public Use
  Company Number: US-ADAMAS PHARMA, LLC-2019ADA02590

PATIENT
  Age: 70 Year
  Sex: Female
  Weight: 72.56 kg

DRUGS (14)
  1. ENTACAPONE. [Concomitant]
     Active Substance: ENTACAPONE
  2. SINEMET [Concomitant]
     Active Substance: CARBIDOPA\LEVODOPA
  3. OMEPRAZOLE. [Concomitant]
     Active Substance: OMEPRAZOLE
  4. MELATONIN [Concomitant]
     Active Substance: MELATONIN
  5. DEEP BRAIN STIMULATION [Concomitant]
     Dosage: UNK
     Dates: start: 2013
  6. ELIQUIS [Concomitant]
     Active Substance: APIXABAN
  7. ATORVASTATIN [Concomitant]
     Active Substance: ATORVASTATIN
     Dosage: 10 MG, EVERY 48 HOURS (EVERY OTHER DAY)
  8. CLONAZEPAM. [Concomitant]
     Active Substance: CLONAZEPAM
  9. GOCOVRI [Suspect]
     Active Substance: AMANTADINE
     Dosage: 274 MG. 1X/DAY AT BEDTIME
     Route: 048
     Dates: start: 20191024, end: 20191120
  10. GABAPENTIN. [Concomitant]
     Active Substance: GABAPENTIN
  11. WELLBUTRIN [Concomitant]
     Active Substance: BUPROPION HYDROCHLORIDE
  12. ZOLOFT [Concomitant]
     Active Substance: SERTRALINE HYDROCHLORIDE
  13. GOCOVRI [Suspect]
     Active Substance: AMANTADINE
     Indication: DYSKINESIA
     Dosage: 137 MG, 1X/DAY AT BEDTIME X 7 DAYS
     Route: 048
     Dates: start: 20191017, end: 20191023
  14. METOPROLOL. [Concomitant]
     Active Substance: METOPROLOL

REACTIONS (4)
  - Fall [Not Recovered/Not Resolved]
  - Gait disturbance [Not Recovered/Not Resolved]
  - Balance disorder [Not Recovered/Not Resolved]
  - Drug ineffective [Not Recovered/Not Resolved]

NARRATIVE: CASE EVENT DATE: 201910
